FAERS Safety Report 8362534-7 (Version None)
Quarter: 2012Q2

REPORT INFORMATION
  Report Type: 
  Country: None (occurrence: None)
  Receive Date: 20120516
  Receipt Date: 20120504
  Transmission Date: 20120825
  Serious: Yes (Death)
  Sender: FDA-Public Use
  Company Number: FR-BRISTOL-MYERS SQUIBB COMPANY-16577793

PATIENT
  Age: 59 Year
  Sex: Female

DRUGS (4)
  1. DOCETAXEL [Suspect]
     Indication: HEAD AND NECK CANCER
     Dosage: LAST DOSE:14JUN2011
     Dates: start: 20110418, end: 20110614
  2. CISPLATIN [Suspect]
     Indication: HEAD AND NECK CANCER
     Dosage: LAST DOSE:14JUN2011
     Dates: start: 20110418, end: 20110614
  3. FLUOROURACIL [Suspect]
     Indication: HEAD AND NECK CANCER
     Dosage: LAST DOSE:18JUN2011
     Dates: start: 20110418, end: 20110618
  4. CETUXIMAB [Suspect]
     Indication: HEAD AND NECK CANCER
     Dosage: LAST INFUSION :23AUG2011.
     Route: 042
     Dates: start: 20110711, end: 20110825

REACTIONS (5)
  - APHAGIA [None]
  - ASPIRATION [None]
  - MUCOSAL INFLAMMATION [None]
  - VOMITING [None]
  - DERMATITIS [None]
